FAERS Safety Report 18332201 (Version 1)
Quarter: 2020Q3

REPORT INFORMATION
  Report Type: Spontaneous
  Country: HU (occurrence: HU)
  Receive Date: 20200930
  Receipt Date: 20200930
  Transmission Date: 20201103
  Serious: Yes (Hospitalization, Other)
  Sender: FDA-Public Use
  Company Number: NVSC2020HU260852

PATIENT
  Age: 64 Year
  Sex: Male

DRUGS (7)
  1. DIGITALIS [Concomitant]
     Active Substance: DIGITALIS
     Indication: PRODUCT USED FOR UNKNOWN INDICATION
     Dosage: UNK
     Route: 065
     Dates: start: 201810
  2. SACUBITRIL,VALSARTAN [Suspect]
     Active Substance: SACUBITRIL\VALSARTAN
     Indication: PRODUCT USED FOR UNKNOWN INDICATION
     Dosage: UNK
     Route: 065
     Dates: end: 2019
  3. APIXABAN [Concomitant]
     Active Substance: APIXABAN
     Indication: PRODUCT USED FOR UNKNOWN INDICATION
     Dosage: 2 MG,2X
     Route: 065
     Dates: start: 201810
  4. SACUBITRIL,VALSARTAN [Suspect]
     Active Substance: SACUBITRIL\VALSARTAN
     Dosage: UNK
     Route: 065
     Dates: start: 20191025
  5. IVABRADINE [Suspect]
     Active Substance: IVABRADINE
     Indication: PRODUCT USED FOR UNKNOWN INDICATION
     Dosage: UNK
     Route: 065
     Dates: end: 201810
  6. AMIODARONE [Suspect]
     Active Substance: AMIODARONE
     Indication: PRODUCT USED FOR UNKNOWN INDICATION
     Dosage: UNK
     Route: 065
  7. PERINDOPRIL [Suspect]
     Active Substance: PERINDOPRIL
     Indication: PRODUCT USED FOR UNKNOWN INDICATION
     Dosage: UNK
     Route: 065

REACTIONS (17)
  - Atrial fibrillation [Unknown]
  - Renal failure [Recovering/Resolving]
  - Intervertebral disc degeneration [Unknown]
  - Brain natriuretic peptide [Unknown]
  - Weight decreased [Unknown]
  - Arthritis [Unknown]
  - Gout [Unknown]
  - Cardiac failure congestive [Not Recovered/Not Resolved]
  - Hyperuricaemia [Unknown]
  - Brain natriuretic peptide increased [Unknown]
  - Gastrooesophageal reflux disease [Unknown]
  - Dilatation atrial [Unknown]
  - Hypotension [Recovered/Resolved]
  - Acute myocardial infarction [Unknown]
  - Oedema [Unknown]
  - Thyroid disorder [Unknown]
  - Atrial flutter [Unknown]

NARRATIVE: CASE EVENT DATE: 2005
